FAERS Safety Report 5154443-1 (Version None)
Quarter: 2006Q4

REPORT INFORMATION
  Report Type: 
  Country: None (occurrence: None)
  Receive Date: 20061114
  Receipt Date: 20061101
  Transmission Date: 20070319
  Serious: Yes (Other)
  Sender: FDA-Public Use
  Company Number: 2006136734

PATIENT
  Age: 60 Year
  Sex: Female

DRUGS (7)
  1. TOLTERODINE TARTRATE [Suspect]
     Dosage: 4 MG, ORAL
     Route: 048
     Dates: start: 20061024
  2. PHENYTOIN [Concomitant]
  3. RUEFRIEN (AZULENE, LEVOGLUTAMIDE) [Concomitant]
  4. ASPIRIN [Concomitant]
  5. LASIX [Concomitant]
  6. FAMOTIDINE [Concomitant]
  7. LOXOPROFEN (LOXOPROFEN) [Concomitant]

REACTIONS (3)
  - ALANINE AMINOTRANSFERASE INCREASED [None]
  - ASPARTATE AMINOTRANSFERASE INCREASED [None]
  - BLOOD ALKALINE PHOSPHATASE INCREASED [None]
